FAERS Safety Report 8860656 (Version 1)
Quarter: 2012Q4

REPORT INFORMATION
  Report Type: 
  Country: US (occurrence: US)
  Receive Date: 20121025
  Receipt Date: 20121025
  Transmission Date: 20130627
  Serious: No
  Sender: FDA-Public Use
  Company Number: US-ABBOTT-12P-163-0899188-00

PATIENT
  Sex: Female
  Weight: 67.19 kg

DRUGS (2)
  1. LUPRON DEPOT 3.75 MG [Suspect]
     Indication: UTERINE LEIOMYOMA
     Dates: start: 200901, end: 200903
  2. LUPRON DEPOT 3.75 MG [Suspect]
     Dates: start: 2008, end: 2008

REACTIONS (7)
  - Arthralgia [Not Recovered/Not Resolved]
  - Osteoporosis [Not Recovered/Not Resolved]
  - Osteopenia [Not Recovered/Not Resolved]
  - Intervertebral disc degeneration [Not Recovered/Not Resolved]
  - Arthralgia [Not Recovered/Not Resolved]
  - Arthralgia [Not Recovered/Not Resolved]
  - Spinal pain [Not Recovered/Not Resolved]
